FAERS Safety Report 14633214 (Version 2)
Quarter: 2018Q1

REPORT INFORMATION
  Report Type: Report from Study
  Country: NL (occurrence: NL)
  Receive Date: 20180313
  Receipt Date: 20180320
  Transmission Date: 20180509
  Serious: Yes (Hospitalization, Other)
  Sender: FDA-Public Use
  Company Number: NL-SEATTLE GENETICS-2018SGN00468

PATIENT
  Age: 17 Year
  Sex: Female
  Weight: 81 kg

DRUGS (10)
  1. METHYLPREDNISOLON                  /00049601/ [Concomitant]
     Active Substance: METHYLPREDNISOLONE
     Dosage: UNK
     Dates: start: 20180227
  2. LIDOCAINE AND PRILOCAINE [Concomitant]
     Active Substance: LIDOCAINE\PRILOCAINE
     Dosage: UNK
     Dates: start: 20171020
  3. UNGUENTUM UNDECYLENICUM [Concomitant]
     Dosage: UNK
     Dates: start: 20180216
  4. FLUTICASON [Concomitant]
     Active Substance: FLUTICASONE
     Dosage: UNK
     Dates: start: 20180219
  5. BETAMETHASON                       /00008501/ [Concomitant]
     Active Substance: BETAMETHASONE
     Dosage: UNK
     Dates: start: 20180216, end: 20180219
  6. CLEMASTINE [Concomitant]
     Active Substance: CLEMASTINE
     Dosage: UNK
     Dates: start: 20180227
  7. NIVOLUMAB [Suspect]
     Active Substance: NIVOLUMAB
     Indication: HODGKIN^S DISEASE
     Dosage: 3 MG/KG, UNK
     Route: 065
     Dates: start: 20171109, end: 20180105
  8. BENDAMUSTINE HYDROCHLORIDE. [Suspect]
     Active Substance: BENDAMUSTINE HYDROCHLORIDE
     Indication: HODGKIN^S DISEASE
     Dosage: 171 MG, UNK
     Route: 042
     Dates: start: 20180206, end: 20180227
  9. BRENTUXIMAB VEDOTIN [Suspect]
     Active Substance: BRENTUXIMAB VEDOTIN
     Indication: HODGKIN^S DISEASE
     Dosage: 148 MG, UNK
     Route: 042
     Dates: start: 20180206, end: 20180227
  10. GRANISETRON [Concomitant]
     Active Substance: GRANISETRON
     Dosage: UNK
     Dates: start: 20180227

REACTIONS (2)
  - Acute kidney injury [Recovered/Resolved]
  - Pyrexia [Recovered/Resolved]

NARRATIVE: CASE EVENT DATE: 20180228
